FAERS Safety Report 16992694 (Version 1)
Quarter: 2019Q4

REPORT INFORMATION
  Report Type: Spontaneous
  Country: US (occurrence: US)
  Receive Date: 20191104
  Receipt Date: 20191104
  Transmission Date: 20200122
  Serious: Yes (Disabling)
  Sender: FDA-Public Use
  Company Number: None

PATIENT
  Age: 42 Year
  Sex: Female
  Weight: 56.25 kg

DRUGS (5)
  1. SYNTHROID 75MCG QD [Concomitant]
  2. DAILY WOMEN^S VITAMIN [Concomitant]
  3. QVAR REDIHALER [Suspect]
     Active Substance: BECLOMETHASONE DIPROPIONATE
     Indication: ASTHMA
     Route: 055
  4. PROAIR PRN [Concomitant]
  5. VITAMIN D SUPPLEMENT [Concomitant]
     Active Substance: VITAMIN D NOS

REACTIONS (3)
  - Device malfunction [None]
  - Asthma [None]
  - Product quality issue [None]

NARRATIVE: CASE EVENT DATE: 20191102
